FAERS Safety Report 22059325 (Version 2)
Quarter: 2023Q1

REPORT INFORMATION
  Report Type: Spontaneous
  Country: US (occurrence: None)
  Receive Date: 20230303
  Receipt Date: 20230322
  Transmission Date: 20230417
  Serious: Yes (Other)
  Sender: FDA-Public Use
  Company Number: US-FARMAPROD-202302-0488

PATIENT
  Age: 84 Year
  Sex: Male

DRUGS (9)
  1. OXERVATE [Suspect]
     Active Substance: CENEGERMIN-BKBJ
     Indication: Neurotrophic keratopathy
     Route: 047
     Dates: start: 20230208
  2. REFRESH RELIEVA PF [Concomitant]
     Active Substance: CARBOXYMETHYLCELLULOSE SODIUM\GLYCERIN
     Dosage: 0.5%-0.9%
  3. MOXIFLOXACIN [Concomitant]
     Active Substance: MOXIFLOXACIN
  4. LENALIDOMIDE [Concomitant]
     Active Substance: LENALIDOMIDE
  5. LOVASTATIN [Concomitant]
     Active Substance: LOVASTATIN
  6. ASPIRIN [Concomitant]
     Active Substance: ASPIRIN
  7. MIRTAZAPINE [Concomitant]
     Active Substance: MIRTAZAPINE
  8. LISINOPRIL [Concomitant]
     Active Substance: LISINOPRIL
  9. DORZOLAMIDE [Concomitant]
     Active Substance: DORZOLAMIDE

REACTIONS (1)
  - Corneal deposits [Recovered/Resolved]

NARRATIVE: CASE EVENT DATE: 20230201
